FAERS Safety Report 7717115-2 (Version None)
Quarter: 2011Q3

REPORT INFORMATION
  Report Type: 
  Country: None (occurrence: None)
  Receive Date: 20110830
  Receipt Date: 20110822
  Transmission Date: 20111222
  Serious: Yes (Hospitalization, Other)
  Sender: FDA-Public Use
  Company Number: US-AMGEN-USASP2011042657

PATIENT
  Age: 69 Year
  Sex: Female

DRUGS (9)
  1. SIMAVASTATIN [Concomitant]
     Dosage: UNK
  2. ARAVA [Concomitant]
     Dosage: UNK
  3. ENBREL [Suspect]
     Indication: RHEUMATOID ARTHRITIS
     Dosage: 50 MG, QWK
  4. FOLIC ACID [Concomitant]
  5. CALTRATE PLUS-D [Concomitant]
  6. MELOXICAM [Concomitant]
  7. ASPIRIN [Concomitant]
     Dosage: UNK
  8. VITAMIN E [Concomitant]
  9. VALACYCLOVIR HYDROCHLORIDE [Concomitant]

REACTIONS (3)
  - HYPOTENSION [None]
  - HYPERTENSION [None]
  - HEART RATE INCREASED [None]
